FAERS Safety Report 23173953 (Version 2)
Quarter: 2023Q4

REPORT INFORMATION
  Report Type: Report from Study
  Country: CA (occurrence: CA)
  Receive Date: 20231111
  Receipt Date: 20231229
  Transmission Date: 20240110
  Serious: Yes (Other)
  Sender: FDA-Public Use
  Company Number: CA-ALXN-A202213008

PATIENT
  Age: 44 Year
  Sex: Female
  Weight: 76 kg

DRUGS (5)
  1. SOLIRIS [Suspect]
     Active Substance: ECULIZUMAB
     Indication: Atypical haemolytic uraemic syndrome
     Dosage: 900 MG, QW
     Route: 042
     Dates: start: 20201105, end: 20201126
  2. SOLIRIS [Suspect]
     Active Substance: ECULIZUMAB
     Dosage: 1200 MG, Q2W
     Route: 042
     Dates: start: 20201203
  3. PENICILLIN V                       /00001801/ [Concomitant]
     Indication: Product used for unknown indication
     Dosage: 300 MG, TID
     Route: 048
  4. TYLENOL [Concomitant]
     Active Substance: ACETAMINOPHEN
     Indication: Product used for unknown indication
     Dosage: UNK
     Route: 065
  5. Covid-19 Vaccine [Concomitant]
     Indication: Immunisation
     Dosage: UNK
     Route: 065
     Dates: end: 20230121

REACTIONS (6)
  - Crohn^s disease [Recovering/Resolving]
  - Laboratory test abnormal [Not Recovered/Not Resolved]
  - Upper respiratory tract infection [Recovered/Resolved]
  - Headache [Recovered/Resolved]
  - Arthralgia [Not Recovered/Not Resolved]
  - Myalgia [Unknown]

NARRATIVE: CASE EVENT DATE: 20211201
